FAERS Safety Report 17921203 (Version 4)
Quarter: 2021Q1

REPORT INFORMATION
  Report Type: Report from Study
  Country: DE (occurrence: DE)
  Receive Date: 20200622
  Receipt Date: 20210315
  Transmission Date: 20210419
  Serious: Yes (Hospitalization)
  Sender: FDA-Public Use
  Company Number: DE-ROCHE-2625360

PATIENT
  Age: 71 Year
  Sex: Female
  Weight: 51 kg

DRUGS (5)
  1. DOCETAXEL. [Suspect]
     Active Substance: DOCETAXEL
     Indication: OESOPHAGEAL ADENOCARCINOMA
     Dosage: LAST DOSE RECEIVED ON 05/JUN/2020
     Route: 042
  2. LEUCOVORIN. [Suspect]
     Active Substance: LEUCOVORIN
     Indication: OESOPHAGEAL ADENOCARCINOMA
     Dosage: LAST DOSE RECEIVED ON 05/JUN/2020
     Route: 042
  3. ATEZOLIZUMAB. [Suspect]
     Active Substance: ATEZOLIZUMAB
     Indication: OESOPHAGEAL ADENOCARCINOMA
     Dosage: LAST DOSE RECEIVED ON 05/JUN/2020
     Route: 041
  4. OXALIPLATIN. [Suspect]
     Active Substance: OXALIPLATIN
     Indication: OESOPHAGEAL ADENOCARCINOMA
     Dosage: LAST DOSE RECEIVED ON 05/JUN/2020
     Route: 042
  5. FLUOROURACIL. [Suspect]
     Active Substance: FLUOROURACIL
     Indication: OESOPHAGEAL ADENOCARCINOMA
     Dosage: LAST DOSE RECEIVED ON 05/JUN/2020
     Route: 042

REACTIONS (2)
  - Gastric haemorrhage [Recovered/Resolved]
  - Hepatitis toxic [Recovering/Resolving]

NARRATIVE: CASE EVENT DATE: 20200616
